FAERS Safety Report 9349699 (Version 2)
Quarter: 2013Q4

REPORT INFORMATION
  Report Type: Report from Study
  Country: JP (occurrence: JP)
  Receive Date: 20130614
  Receipt Date: 20131128
  Transmission Date: 20140711
  Serious: Yes (Other)
  Sender: FDA-Public Use
  Company Number: JP-009507513-1305JPN007460

PATIENT
  Age: 36 Year
  Sex: Female
  Weight: 43 kg

DRUGS (9)
  1. GANIREST SUBCUTANEOUS 0.25MG SYRINGE [Suspect]
     Indication: PREVENTION OF PREMATURE OVULATION
     Dosage: 0.25 MG, QD
     Route: 058
     Dates: start: 20111202, end: 20111205
  2. PLANOVAR [Concomitant]
     Indication: IN VITRO FERTILISATION
     Dosage: 1 DF, QD
     Route: 048
     Dates: start: 20111108, end: 20111117
  3. FOLYRMON P [Concomitant]
     Indication: IN VITRO FERTILISATION
     Dosage: 150 (UNDER 1000 UNIT), QD
     Route: 030
     Dates: start: 20111121, end: 20111122
  4. FOLYRMON P [Concomitant]
     Dosage: 75 (UNDER 1000 UNIT), QD
     Route: 030
     Dates: start: 20111123, end: 20111124
  5. GONADOTROPHIN, SERUM [Concomitant]
     Indication: IN VITRO FERTILISATION
     Dosage: 150 (UNDER 1000 UNIT), QD
     Route: 030
     Dates: start: 20111121, end: 20111204
  6. GONADOTROPHIN, SERUM [Concomitant]
     Dosage: 75 (UNDER 1000 UNIT), QD
     Route: 030
     Dates: start: 20111125, end: 20111126
  7. GONADOTROPHIN, SERUM [Concomitant]
     Dosage: 75 (UNDER 1000 UNIT), QD
     Route: 030
     Dates: start: 20111130, end: 20111204
  8. GONADOTROPHIN, SERUM [Concomitant]
     Dosage: 100 (UNDER 1000 UNIT), QD
     Route: 030
     Dates: start: 20111205, end: 20111205
  9. BUSERECUR [Concomitant]
     Indication: OVULATION INDUCTION
     Dosage: 600 MICROGRAM, QD
     Route: 045
     Dates: start: 20111205, end: 20111205

REACTIONS (1)
  - Abortion [Recovered/Resolved]
